FAERS Safety Report 6188492-1 (Version None)
Quarter: 2009Q2

REPORT INFORMATION
  Report Type: 
  Country: None (occurrence: None)
  Receive Date: 20090513
  Receipt Date: 20090504
  Transmission Date: 20091009
  Serious: Yes (Life-Threatening, Hospitalization)
  Sender: FDA-Public Use
  Company Number: FR-PFIZER INC-2009210360

PATIENT
  Age: 4 Hour

DRUGS (2)
  1. HYDROXYZINE HCL [Suspect]
     Dosage: 50 MG, UNK
     Route: 064
     Dates: start: 20090308, end: 20090315
  2. NICARDIPINE HYDROCHLORIDE [Concomitant]
     Dosage: 100 MG, UNK
     Dates: start: 20090308, end: 20090315

REACTIONS (6)
  - APNOEA [None]
  - BRADYCARDIA [None]
  - CYANOSIS [None]
  - DRUG EXPOSURE DURING PREGNANCY [None]
  - MALAISE [None]
  - SUPRAVENTRICULAR EXTRASYSTOLES [None]
